FAERS Safety Report 9775097 (Version 2)
Quarter: 2014Q1

REPORT INFORMATION
  Report Type: Spontaneous
  Country: US (occurrence: US)
  Receive Date: 20131220
  Receipt Date: 20140129
  Transmission Date: 20141002
  Serious: No
  Sender: FDA-Public Use
  Company Number: US-PFIZER INC-2013362748

PATIENT
  Age: 52 Year
  Sex: Female
  Weight: 134 kg

DRUGS (2)
  1. LYRICA [Suspect]
     Indication: FIBROMYALGIA
     Dosage: 150 MG, 2X/DAY
     Route: 048
     Dates: start: 201110, end: 201201
  2. LYRICA [Suspect]
     Dosage: UNK
     Route: 048
     Dates: start: 201201

REACTIONS (1)
  - Hypertonic bladder [Unknown]
